FAERS Safety Report 8909736 (Version 1)
Quarter: 2012Q4

REPORT INFORMATION
  Report Type: 
  Country: IT (occurrence: IT)
  Receive Date: 20121115
  Receipt Date: 20121115
  Transmission Date: 20130627
  Serious: Yes (Other)
  Sender: FDA-Public Use
  Company Number: IT-GENZYME-CAMP-1002495

PATIENT
  Age: 38 None
  Sex: Female

DRUGS (1)
  1. CAMPATH [Suspect]
     Indication: PRODUCT USED FOR UNKNOWN INDICATION
     Dosage: UNK
     Route: 065
     Dates: start: 20090615, end: 20100625

REACTIONS (2)
  - Thyroiditis [Unknown]
  - Hyperthyroidism [Not Recovered/Not Resolved]
